FAERS Safety Report 12611512 (Version 2)
Quarter: 2016Q4

REPORT INFORMATION
  Report Type: Spontaneous
  Country: JP (occurrence: JP)
  Receive Date: 20160801
  Receipt Date: 20161207
  Transmission Date: 20170207
  Serious: Yes (Hospitalization, Other)
  Sender: FDA-Public Use
  Company Number: JP-BRISTOL-MYERS SQUIBB COMPANY-BMS-2016-053592

PATIENT
  Age: 91 Year
  Sex: Male
  Weight: 53.5 kg

DRUGS (6)
  1. DIART [Concomitant]
     Active Substance: AZOSEMIDE
     Indication: OEDEMA DUE TO RENAL DISEASE
     Dosage: 30 MG, QD
     Route: 048
     Dates: start: 20140618
  2. EQUA [Concomitant]
     Active Substance: VILDAGLIPTIN
     Indication: TYPE 2 DIABETES MELLITUS
     Dosage: 50 MG, QD
     Route: 048
     Dates: start: 201012
  3. FEBURIC [Concomitant]
     Active Substance: FEBUXOSTAT
     Indication: HYPERURICAEMIA
     Dosage: 20 MG, QD
     Route: 048
     Dates: start: 20140924
  4. ELIQUIS [Suspect]
     Active Substance: APIXABAN
     Indication: CEREBROVASCULAR ACCIDENT PROPHYLAXIS
     Dosage: 2.5 MG, BID
     Route: 048
     Dates: start: 20151106, end: 20160222
  5. AIMIX [Concomitant]
     Active Substance: AMLODIPINE BESYLATE\IRBESARTAN
     Indication: HYPERTENSION
     Dosage: UNK, QD
     Route: 048
     Dates: start: 20130612
  6. SENNA [Concomitant]
     Active Substance: SENNA LEAF\SENNOSIDES\SENNOSIDES A AND B
     Indication: CONSTIPATION
     Dosage: 0.5 G, QD
     Route: 048
     Dates: start: 20111214

REACTIONS (3)
  - Gastrointestinal haemorrhage [Recovering/Resolving]
  - Packed red blood cell transfusion [Unknown]
  - Polyp [Unknown]

NARRATIVE: CASE EVENT DATE: 20160203
